FAERS Safety Report 7619657-7 (Version None)
Quarter: 2011Q3

REPORT INFORMATION
  Report Type: 
  Country: None (occurrence: None)
  Receive Date: 20110719
  Receipt Date: 20110713
  Transmission Date: 20111222
  Serious: Yes (Life-Threatening, Hospitalization)
  Sender: FDA-Public Use
  Company Number: US-RANBAXY-2011US-46100

PATIENT
  Age: 46 Year
  Sex: Female

DRUGS (1)
  1. LORAZEPAM [Suspect]
     Indication: CATATONIA
     Dosage: UNK, UNK
     Route: 065

REACTIONS (3)
  - OFF LABEL USE [None]
  - STAPHYLOCOCCAL INFECTION [None]
  - RESPIRATORY DISTRESS [None]
